FAERS Safety Report 6171769-3 (Version None)
Quarter: 2009Q2

REPORT INFORMATION
  Report Type: 
  Country: None (occurrence: None)
  Receive Date: 20090428
  Receipt Date: 20090428
  Transmission Date: 20091009
  Serious: Yes (Life-Threatening)
  Sender: FDA-Public Use
  Company Number: None

PATIENT
  Age: 31 Year
  Sex: Female

DRUGS (1)
  1. INFED [Suspect]
     Indication: ANAEMIA
     Dosage: 25MG ONCE IV DRIP
     Route: 041
     Dates: start: 20080606, end: 20080606

REACTIONS (2)
  - ASTHMA [None]
  - CONDITION AGGRAVATED [None]
